FAERS Safety Report 9681606 (Version 2)
Quarter: 2013Q4

REPORT INFORMATION
  Report Type: Spontaneous
  Country: ES (occurrence: ES)
  Receive Date: 20131111
  Receipt Date: 20131126
  Transmission Date: 20140711
  Serious: No
  Sender: FDA-Public Use
  Company Number: ES-B.I. PHARMACEUTICALS,INC./RIDGEFIELD-2013-BI-34918ES

PATIENT
  Age: 48 Year
  Sex: Male

DRUGS (3)
  1. TRAJENTA [Suspect]
     Indication: GLUCOSE TOLERANCE IMPAIRED
     Dosage: 5 MG
     Dates: start: 20131023, end: 20131028
  2. COUGH SYRUP WITH SUCROSE [Suspect]
     Indication: COUGH
     Dates: start: 20131023, end: 20131028
  3. OMEPRAZOLE [Concomitant]

REACTIONS (4)
  - Urticaria [Recovered/Resolved]
  - Drug interaction [Unknown]
  - Pruritus [Recovered/Resolved]
  - Drug ineffective [Unknown]
